FAERS Safety Report 9075599 (Version 1)
Quarter: 2013Q1

REPORT INFORMATION
  Report Type: Report from Study
  Country: US (occurrence: US)
  Receive Date: 20130129
  Receipt Date: 20130129
  Transmission Date: 20140127
  Serious: No
  Sender: FDA-Public Use
  Company Number: US-ABBOTT-12P-163-0941564-00

PATIENT
  Age: 33 Year
  Sex: Female

DRUGS (6)
  1. HUMIRA 40 MG/0.8 ML PEN [Suspect]
     Indication: RHEUMATOID ARTHRITIS
  2. NORCO 10^S [Concomitant]
     Indication: PAIN
     Dosage: AS NEEDED ALONG WITH IBUPROFEN
  3. IBUPROFEN [Concomitant]
     Indication: PAIN
     Route: 048
  4. ARAVA [Concomitant]
     Indication: RHEUMATOID ARTHRITIS
     Route: 048
  5. PHENERGAN [Concomitant]
     Indication: NAUSEA
  6. LISINOPRIL [Concomitant]
     Indication: HYPERTENSION
     Route: 048

REACTIONS (4)
  - Pain [Not Recovered/Not Resolved]
  - Bursitis [Not Recovered/Not Resolved]
  - Joint swelling [Not Recovered/Not Resolved]
  - Arthralgia [Not Recovered/Not Resolved]
